FAERS Safety Report 5317196-X (Version None)
Quarter: 2007Q2

REPORT INFORMATION
  Report Type: 
  Country: None (occurrence: None)
  Receive Date: 20070504
  Receipt Date: 20070425
  Transmission Date: 20071010
  Serious: Yes (Hospitalization, Other)
  Sender: FDA-Public Use
  Company Number: DE-PFIZER INC-2007034383

PATIENT
  Sex: Female
  Weight: 45 kg

DRUGS (1)
  1. CHAMPIX [Suspect]
     Indication: TOBACCO WITHDRAWAL SYMPTOMS
     Dosage: DAILY DOSE:1MG
     Route: 048

REACTIONS (3)
  - BLOOD PRESSURE SYSTOLIC DECREASED [None]
  - CIRCULATORY COLLAPSE [None]
  - NAUSEA [None]
